FAERS Safety Report 8074501-1 (Version None)
Quarter: 2012Q1

REPORT INFORMATION
  Report Type: 
  Country: None (occurrence: None)
  Receive Date: 20120126
  Receipt Date: 20120117
  Transmission Date: 20120608
  Serious: Yes (Hospitalization)
  Sender: FDA-Public Use
  Company Number: IE-BAXTER-2012BH002175

PATIENT
  Sex: Female

DRUGS (2)
  1. FLUCLOXACILLIN [Suspect]
     Indication: INTERVERTEBRAL DISCITIS
     Route: 065
  2. SODIUM CHLORIDE 0.9% IN PLASTIC CONTAINER [Suspect]
     Indication: INTERVERTEBRAL DISCITIS
     Route: 065
     Dates: start: 20120112

REACTIONS (3)
  - PAIN IN EXTREMITY [None]
  - CHEST PAIN [None]
  - INJECTION SITE SWELLING [None]
